FAERS Safety Report 9050624 (Version 1)
Quarter: 2013Q1

REPORT INFORMATION
  Report Type: Spontaneous
  Country: BR (occurrence: BR)
  Receive Date: 20130205
  Receipt Date: 20130205
  Transmission Date: 20140127
  Serious: Yes (Other)
  Sender: FDA-Public Use
  Company Number: BR-PFIZER INC-2013044045

PATIENT
  Age: 71 Year
  Sex: Female

DRUGS (3)
  1. PREGABALIN [Suspect]
     Indication: ARTHRALGIA
     Dosage: UNK
  2. ATACAND [Concomitant]
     Dosage: UNK
     Dates: start: 2010
  3. PRESSAT [Concomitant]
     Indication: BLOOD PRESSURE ABNORMAL
     Dosage: UNK
     Dates: start: 2010

REACTIONS (7)
  - Blood pressure abnormal [Unknown]
  - Renal disorder [Unknown]
  - Hypoaesthesia oral [Unknown]
  - Nausea [Unknown]
  - Dry mouth [Unknown]
  - Feeling abnormal [Unknown]
  - Off label use [Unknown]
